FAERS Safety Report 25126921 (Version 1)
Quarter: 2025Q1

REPORT INFORMATION
  Report Type: Spontaneous
  Country: US (occurrence: US)
  Receive Date: 20250327
  Receipt Date: 20250327
  Transmission Date: 20250409
  Serious: No
  Sender: UCB
  Company Number: US-UCBSA-2025005095

PATIENT
  Sex: Male
  Weight: 90.71 kg

DRUGS (2)
  1. BIMZELX [Suspect]
     Active Substance: BIMEKIZUMAB-BKZX
     Indication: Psoriatic arthropathy
     Dosage: 320 MILLIGRAM, EV 4 WEEKS (THEN 2 PENS (2 ML) EVERY 8 WEEKS THEREAFTER)
     Route: 058
     Dates: start: 20241227
  2. OTEZLA [Concomitant]
     Active Substance: APREMILAST
     Indication: Product used for unknown indication

REACTIONS (2)
  - Increased appetite [Not Recovered/Not Resolved]
  - Drug ineffective [Unknown]
